FAERS Safety Report 12791885 (Version 1)
Quarter: 2016Q3

REPORT INFORMATION
  Report Type: Spontaneous
  Country: US (occurrence: US)
  Receive Date: 20160929
  Receipt Date: 20160929
  Transmission Date: 20161109
  Serious: Yes (Other)
  Sender: FDA-Public Use
  Company Number: US-ALKERMES INC.-ALK-2016-002704

PATIENT
  Age: 2 Day
  Sex: Male

DRUGS (1)
  1. VIVITROL [Suspect]
     Active Substance: NALTREXONE
     Indication: PRODUCT USED FOR UNKNOWN INDICATION
     Dosage: 380 MG, QMO

REACTIONS (3)
  - Crying [Unknown]
  - Drug withdrawal syndrome neonatal [Unknown]
  - Tremor [Unknown]

NARRATIVE: CASE EVENT DATE: 20160915
